FAERS Safety Report 10710921 (Version 2)
Quarter: 2015Q1

REPORT INFORMATION
  Report Type: Spontaneous
  Country: US (occurrence: None)
  Receive Date: 20150113
  Receipt Date: 20150120
  Transmission Date: 20150721
  Serious: Yes (Death, Life-Threatening, Other)
  Sender: FDA-Public Use
  Company Number: BD-2014-0160

PATIENT
  Age: 42 Year
  Sex: Female

DRUGS (2)
  1. DIPHENHYDRAMINE (DIPHENHYDRAMINE) [Suspect]
     Active Substance: DIPHENHYDRAMINE
     Indication: PRODUCT USED FOR UNKNOWN INDICATION
     Dosage: 50-100 25 MG TABS
     Route: 048
  2. ACETAMINOPHEN (PARACETAMOL) [Suspect]
     Active Substance: ACETAMINOPHEN
     Indication: PRODUCT USED FOR UNKNOWN INDICATION
     Dosage: 50-100 500 MG TABS
     Route: 048

REACTIONS (5)
  - Overdose [None]
  - Pulseless electrical activity [None]
  - Hypoglycaemia [None]
  - Cardiac arrest [None]
  - Toxicity to various agents [None]
